FAERS Safety Report 14718239 (Version 1)
Quarter: 2018Q2

REPORT INFORMATION
  Report Type: Spontaneous
  Country: US (occurrence: US)
  Receive Date: 20180404
  Receipt Date: 20180404
  Transmission Date: 20180711
  Serious: No
  Sender: FDA-Public Use
  Company Number: US-SA-2018SA070512

PATIENT
  Age: 24 Year
  Sex: Male

DRUGS (8)
  1. CICLOSPORIN [Concomitant]
     Active Substance: CYCLOSPORINE
  2. TRIAMCINOLONE [Concomitant]
     Active Substance: TRIAMCINOLONE
  3. CYCLOBENZAPRINE. [Concomitant]
     Active Substance: CYCLOBENZAPRINE
  4. HYDROXYZINE [Concomitant]
     Active Substance: HYDROXYZINE HYDROCHLORIDE
  5. DUPIXENT [Suspect]
     Active Substance: DUPILUMAB
     Indication: DERMATITIS ATOPIC
     Dosage: DOSE- 300MG/2ML, 600MG
     Route: 058
     Dates: start: 20171205
  6. MONTELUKAST [Concomitant]
     Active Substance: MONTELUKAST SODIUM
  7. POLYMYXIN/BACITRACIN [Concomitant]
  8. BESIVANCE [Concomitant]
     Active Substance: BESIFLOXACIN

REACTIONS (2)
  - Dermatitis [Not Recovered/Not Resolved]
  - Drug dose omission [Unknown]

NARRATIVE: CASE EVENT DATE: 2018
